FAERS Safety Report 21886936 (Version 1)
Quarter: 2023Q1

REPORT INFORMATION
  Report Type: Report from Study
  Country: US (occurrence: US)
  Receive Date: 20230119
  Receipt Date: 20230119
  Transmission Date: 20230417
  Serious: Yes (Hospitalization, Other)
  Sender: FDA-Public Use
  Company Number: US-ALLERGAN-2300993US

PATIENT
  Sex: Male
  Weight: 74.84 kg

DRUGS (1)
  1. ASENAPINE MALEATE [Suspect]
     Active Substance: ASENAPINE MALEATE
     Indication: Product used for unknown indication
     Dosage: UNK, QD
     Route: 060

REACTIONS (11)
  - Contusion [Recovered/Resolved]
  - Internal haemorrhage [Recovered/Resolved]
  - Haemoglobin decreased [Recovered/Resolved]
  - Malnutrition [Recovered/Resolved]
  - Feeding disorder [Recovered/Resolved]
  - Thrombosis [Recovered/Resolved]
  - Illness [Recovered/Resolved]
  - Expired product administered [Unknown]
  - Product dispensing error [Unknown]
  - Fall [Recovered/Resolved]
  - Dizziness [Recovered/Resolved]

NARRATIVE: CASE EVENT DATE: 20211101
